FAERS Safety Report 18628207 (Version 52)
Quarter: 2025Q2

REPORT INFORMATION
  Report Type: Report from Study
  Country: IE (occurrence: IE)
  Receive Date: 20201217
  Receipt Date: 20250603
  Transmission Date: 20250716
  Serious: Yes (Other)
  Sender: TAKEDA
  Company Number: IE-SHIRE-IE202027135

PATIENT
  Age: 14 Year
  Sex: Male

DRUGS (49)
  1. IDURSULFASE [Suspect]
     Active Substance: IDURSULFASE
     Indication: Mucopolysaccharidosis II
     Dosage: 36 MILLIGRAM, 1/WEEK
     Dates: start: 20061203
  2. IDURSULFASE [Suspect]
     Active Substance: IDURSULFASE
     Dosage: 36 MILLIGRAM, 1/WEEK
     Dates: start: 20120119
  3. IDURSULFASE [Suspect]
     Active Substance: IDURSULFASE
     Dosage: 36 MILLIGRAM, 1/WEEK
     Dates: start: 20150427
  4. IDURSULFASE [Suspect]
     Active Substance: IDURSULFASE
     Dosage: 36 MILLIGRAM, 1/WEEK
  5. IDURSULFASE [Suspect]
     Active Substance: IDURSULFASE
     Dosage: 36 MILLIGRAM, 1/WEEK
  6. IDURSULFASE [Suspect]
     Active Substance: IDURSULFASE
     Dosage: 36 MILLIGRAM, 1/WEEK
     Dates: start: 20211207
  7. IDURSULFASE [Suspect]
     Active Substance: IDURSULFASE
     Dosage: 36 MILLIGRAM, 1/WEEK
     Dates: start: 20220817
  8. IDURSULFASE [Suspect]
     Active Substance: IDURSULFASE
     Dosage: 36 MILLIGRAM, 1/WEEK
     Dates: start: 20230720
  9. IDURSULFASE [Suspect]
     Active Substance: IDURSULFASE
  10. IDURSULFASE [Suspect]
     Active Substance: IDURSULFASE
     Dosage: 36 MILLIGRAM, 1/WEEK
  11. IDURSULFASE [Suspect]
     Active Substance: IDURSULFASE
     Dosage: 30 MILLIGRAM, 1/WEEK
  12. IDURSULFASE [Suspect]
     Active Substance: IDURSULFASE
     Dosage: UNK UNK, Q2WEEKS
  13. IDURSULFASE [Suspect]
     Active Substance: IDURSULFASE
     Dosage: UNK UNK, Q2WEEKS
  14. IDURSULFASE [Suspect]
     Active Substance: IDURSULFASE
     Dosage: UNK UNK, Q2WEEKS
  15. IDURSULFASE [Suspect]
     Active Substance: IDURSULFASE
     Dosage: UNK UNK, Q2WEEKS
  16. IDURSULFASE [Suspect]
     Active Substance: IDURSULFASE
     Dosage: UNK UNK, Q2WEEKS
  17. IDURSULFASE [Suspect]
     Active Substance: IDURSULFASE
     Dosage: 36 MILLIGRAM, 1/WEEK
  18. IDURSULFASE [Suspect]
     Active Substance: IDURSULFASE
     Dosage: 36 MILLIGRAM, 1/WEEK
  19. IDURSULFASE [Suspect]
     Active Substance: IDURSULFASE
     Dosage: 36 MILLIGRAM, 1/WEEK
  20. IDURSULFASE [Suspect]
     Active Substance: IDURSULFASE
     Dosage: 36 MILLIGRAM, 1/WEEK
  21. IDURSULFASE [Suspect]
     Active Substance: IDURSULFASE
  22. IDURSULFASE [Suspect]
     Active Substance: IDURSULFASE
  23. IDURSULFASE [Suspect]
     Active Substance: IDURSULFASE
     Dosage: UNK UNK, Q2WEEKS
     Dates: start: 20200923
  24. IDURSULFASE [Suspect]
     Active Substance: IDURSULFASE
     Dosage: UNK UNK, Q2WEEKS
  25. IDURSULFASE [Suspect]
     Active Substance: IDURSULFASE
     Dosage: 36 MILLIGRAM, 1/WEEK
  26. IDURSULFASE [Suspect]
     Active Substance: IDURSULFASE
     Dosage: 36 MILLIGRAM, 1/WEEK
  27. IDURSULFASE [Suspect]
     Active Substance: IDURSULFASE
     Dosage: 36 MILLIGRAM, 1/WEEK
     Dates: start: 20240131
  28. IDURSULFASE [Suspect]
     Active Substance: IDURSULFASE
     Dosage: 36 MILLIGRAM, 1/WEEK
     Dates: start: 20240612
  29. IDURSULFASE [Suspect]
     Active Substance: IDURSULFASE
     Dosage: 36 MILLIGRAM, 1/WEEK
  30. IDURSULFASE [Suspect]
     Active Substance: IDURSULFASE
  31. IDURSULFASE [Suspect]
     Active Substance: IDURSULFASE
     Dosage: 36 MILLIGRAM, 1/WEEK
     Dates: start: 20241120
  32. IDURSULFASE [Suspect]
     Active Substance: IDURSULFASE
     Dosage: 36 MILLIGRAM, 1/WEEK
  33. IDURSULFASE [Suspect]
     Active Substance: IDURSULFASE
     Dosage: 36 MILLIGRAM, 1/WEEK
  34. IDURSULFASE [Suspect]
     Active Substance: IDURSULFASE
     Dosage: 42 MILLIGRAM, 1/WEEK
     Dates: start: 20250312
  35. IDURSULFASE [Suspect]
     Active Substance: IDURSULFASE
     Dosage: 42 MILLIGRAM, 1/WEEK
     Dates: start: 20250326
  36. IDURSULFASE [Suspect]
     Active Substance: IDURSULFASE
     Dosage: 42 MILLIGRAM, 1/WEEK
  37. IDURSULFASE [Suspect]
     Active Substance: IDURSULFASE
     Dosage: 42 MILLIGRAM, 1/WEEK
  38. PFIZER-BIONTECH COVID-19 VACCINE [Suspect]
     Active Substance: TOZINAMERAN
     Indication: COVID-19 immunisation
  39. DIAZEPAM [Concomitant]
     Active Substance: DIAZEPAM
     Dosage: 2.5 MILLIGRAM, QD
  40. CETIRIZINE HYDROCHLORIDE [Concomitant]
     Active Substance: CETIRIZINE HYDROCHLORIDE
     Dosage: 5 MILLIGRAM, QD
  41. CETIRIZINE HYDROCHLORIDE [Concomitant]
     Active Substance: CETIRIZINE HYDROCHLORIDE
  42. PREDNISOLONE [Concomitant]
     Active Substance: PREDNISOLONE
  43. RANITIDINE [Concomitant]
     Active Substance: RANITIDINE
     Dosage: 10 MILLILITER, 1/WEEK
  44. RANITIDINE [Concomitant]
     Active Substance: RANITIDINE
  45. ACETAMINOPHEN [Concomitant]
     Active Substance: ACETAMINOPHEN
  46. ACETAMINOPHEN [Concomitant]
     Active Substance: ACETAMINOPHEN
  47. ACETAMINOPHEN [Concomitant]
     Active Substance: ACETAMINOPHEN
  48. CETIRIZINE HYDROCHLORIDE [Concomitant]
     Active Substance: CETIRIZINE HYDROCHLORIDE
  49. VOLTAROL [Concomitant]
     Active Substance: DICLOFENAC SODIUM
     Dosage: 25 MILLIGRAM, BID

REACTIONS (30)
  - Choking [Unknown]
  - Anaphylactic reaction [Unknown]
  - Lower respiratory tract infection [Recovering/Resolving]
  - Rash papular [Unknown]
  - Infusion site pain [Recovered/Resolved]
  - Nasopharyngitis [Not Recovered/Not Resolved]
  - Poor venous access [Recovered/Resolved]
  - Inappropriate schedule of product administration [Recovering/Resolving]
  - Product dose omission issue [Not Recovered/Not Resolved]
  - Dyspepsia [Unknown]
  - Arthralgia [Not Recovered/Not Resolved]
  - Infusion site extravasation [Recovered/Resolved]
  - Eosinophilic oesophagitis [Unknown]
  - Dehydration [Unknown]
  - Respiratory symptom [Unknown]
  - Malaise [Recovering/Resolving]
  - Influenza [Recovering/Resolving]
  - Complication associated with device [Not Recovered/Not Resolved]
  - Inflammation [Recovered/Resolved]
  - Feeling abnormal [Recovered/Resolved]
  - Device infusion issue [Recovered/Resolved]
  - Ear infection [Recovering/Resolving]
  - Eczema [Not Recovered/Not Resolved]
  - Vomiting [Unknown]
  - Diarrhoea [Unknown]
  - Rash [Recovered/Resolved]
  - Urticaria [Unknown]
  - Pharyngitis streptococcal [Recovering/Resolving]
  - Stress [Unknown]
  - Pyrexia [Recovering/Resolving]

NARRATIVE: CASE EVENT DATE: 20201209
